FAERS Safety Report 8987153 (Version 2)
Quarter: 2013Q4

REPORT INFORMATION
  Report Type: Spontaneous
  Country: US (occurrence: US)
  Receive Date: 20121227
  Receipt Date: 20131223
  Transmission Date: 20140711
  Serious: Yes (Other)
  Sender: FDA-Public Use
  Company Number: US-BAYER-2012-135314

PATIENT
  Age: 20 Year
  Sex: Female

DRUGS (9)
  1. YASMIN [Suspect]
     Dosage: UNK
     Dates: start: 2008, end: 2010
  2. YAZ [Suspect]
     Dosage: UNK
     Dates: start: 2008, end: 2010
  3. OCELLA [Suspect]
     Dosage: UNK
     Dates: start: 2008, end: 2010
  4. BEYAZ [Suspect]
     Dosage: UNK
     Dates: start: 2008, end: 2010
  5. ZITHROMAX [Concomitant]
     Dosage: 250 MG, UNK
  6. DICLOFENAC SODIUM [Concomitant]
  7. IBUPROFEN [Concomitant]
  8. METRONIDAZOLE [Concomitant]
     Dosage: 500 MG, 1 TABLET BID
  9. LEVORA [Concomitant]

REACTIONS (8)
  - Cholelithiasis [None]
  - Cholecystitis [None]
  - Biliary dyskinesia [None]
  - Injury [None]
  - Pain [None]
  - Emotional distress [None]
  - Anxiety [None]
  - Psychological trauma [None]
